FAERS Safety Report 4978568-6 (Version None)
Quarter: 2006Q2

REPORT INFORMATION
  Report Type: 
  Country: None (occurrence: None)
  Receive Date: 20060414
  Receipt Date: 20060331
  Transmission Date: 20061013
  Serious: Yes (Other)
  Sender: FDA-Public Use
  Company Number: 200610240BFR

PATIENT
  Age: 55 Year
  Sex: Male
  Weight: 81 kg

DRUGS (4)
  1. LEVITRA [Suspect]
     Indication: ERECTILE DYSFUNCTION
     Dosage: 10 MG, TOTAL DAILY, ORAL
     Route: 048
     Dates: start: 20060203
  2. NEO-MERCAZOLE TAB [Concomitant]
  3. LEVOTHYROX [Concomitant]
  4. PROPRANOLOL [Concomitant]

REACTIONS (7)
  - CHEST DISCOMFORT [None]
  - DISEASE RECURRENCE [None]
  - HYPERHIDROSIS [None]
  - HYPERTHYROIDISM [None]
  - IMPAIRED DRIVING ABILITY [None]
  - PALPITATIONS [None]
  - VISUAL FIELD DEFECT [None]
